FAERS Safety Report 23021706 (Version 1)
Quarter: 2023Q4

REPORT INFORMATION
  Report Type: Report from Study
  Country: IT (occurrence: IT)
  Receive Date: 20231003
  Receipt Date: 20231003
  Transmission Date: 20240110
  Serious: Yes (Other)
  Sender: FDA-Public Use
  Company Number: IT-PFIZER INC-2020183895

PATIENT
  Age: 68 Year
  Sex: Female

DRUGS (5)
  1. OXYCODONE HYDROCHLORIDE [Interacting]
     Active Substance: OXYCODONE HYDROCHLORIDE
     Indication: Product used for unknown indication
     Dosage: UNK
     Route: 065
  2. PREGABALIN [Interacting]
     Active Substance: PREGABALIN
     Indication: Product used for unknown indication
     Dosage: UNK
     Route: 065
  3. .DELTA.8-TETRAHYDROCANNABINOL\HERBALS [Interacting]
     Active Substance: .DELTA.8-TETRAHYDROCANNABINOL\HERBALS
     Indication: Fibromyalgia
     Dosage: 100 MG, DAILY
     Route: 048
  4. .DELTA.8-TETRAHYDROCANNABINOL\HERBALS [Interacting]
     Active Substance: .DELTA.8-TETRAHYDROCANNABINOL\HERBALS
     Indication: Pain
  5. .DELTA.8-TETRAHYDROCANNABINOL\HERBALS [Interacting]
     Active Substance: .DELTA.8-TETRAHYDROCANNABINOL\HERBALS
     Indication: Spinal stenosis

REACTIONS (5)
  - Drug interaction [Unknown]
  - Tachyarrhythmia [Recovered/Resolved]
  - Negative thoughts [Recovered/Resolved]
  - Feeling abnormal [Recovered/Resolved]
  - Hypertension [Recovered/Resolved]
